FAERS Safety Report 8932268 (Version 2)
Quarter: 2013Q1

REPORT INFORMATION
  Report Type: Spontaneous
  Country: MX (occurrence: MX)
  Receive Date: 20121128
  Receipt Date: 20130130
  Transmission Date: 20140127
  Serious: Yes (Hospitalization, Other)
  Sender: FDA-Public Use
  Company Number: PHHY2012MX109037

PATIENT
  Age: 87 Year
  Sex: Female

DRUGS (5)
  1. CO-DIOVAN [Suspect]
     Indication: HYPERTENSION
     Dosage: 1 DF (160/12.5 MG), DAILY
     Route: 048
     Dates: start: 201005
  2. ASPIRIN PROTECT [Concomitant]
     Dosage: 1 DF, DAILY
     Dates: start: 200901
  3. LIPITOR [Concomitant]
     Dosage: 1 DF, DAILY
     Dates: start: 201005
  4. LANOXIN [Concomitant]
     Dosage: 0.5 DF, UNK
     Dates: start: 201005
  5. PARACETAMOL [Concomitant]
     Dosage: 1 DF, UNK
     Dates: start: 201209

REACTIONS (7)
  - Fall [Not Recovered/Not Resolved]
  - Hip fracture [Not Recovered/Not Resolved]
  - Cardiac disorder [Not Recovered/Not Resolved]
  - Memory impairment [Not Recovered/Not Resolved]
  - Gastritis [Not Recovered/Not Resolved]
  - Dyspepsia [Not Recovered/Not Resolved]
  - Local swelling [Not Recovered/Not Resolved]
